FAERS Safety Report 9515962 (Version 1)
Quarter: 2013Q3

REPORT INFORMATION
  Report Type: Report from Study
  Country: US (occurrence: US)
  Receive Date: 20130911
  Receipt Date: 20130911
  Transmission Date: 20140515
  Serious: Yes (Other)
  Sender: FDA-Public Use
  Company Number: US-ROCHE-1271063

PATIENT
  Sex: Female

DRUGS (11)
  1. ACTEMRA [Suspect]
     Indication: RHEUMATOID ARTHRITIS
     Route: 042
  2. RITUXAN [Suspect]
     Indication: PRODUCT USED FOR UNKNOWN INDICATION
     Dosage: ON DEMAND
     Route: 042
  3. ARAVA [Concomitant]
     Route: 048
  4. PREDNISONE [Concomitant]
     Route: 048
  5. MOBIC [Concomitant]
     Route: 048
  6. FOLIC ACID [Concomitant]
     Dosage: 3 TABLETS BY MOUTH DAILY
     Route: 065
  7. LORTAB [Concomitant]
     Indication: PAIN
     Dosage: 500/LOMG TABS
     Route: 065
  8. ALENDRONATE SODIUM [Concomitant]
     Route: 065
  9. SYNTHROID [Concomitant]
     Route: 065
  10. FLEXERIL (UNITED STATES) [Concomitant]
     Route: 065
  11. LYRICA [Concomitant]
     Route: 065

REACTIONS (4)
  - Drug hypersensitivity [Unknown]
  - Arthralgia [Unknown]
  - Paraesthesia [Unknown]
  - Swelling [Unknown]
